FAERS Safety Report 24905682 (Version 1)
Quarter: 2025Q1

REPORT INFORMATION
  Report Type: Report from Study
  Country: US (occurrence: US)
  Receive Date: 20250130
  Receipt Date: 20250130
  Transmission Date: 20250409
  Serious: No
  Sender: HRA PHARMA
  Company Number: US-ORG100014127-2024000220

PATIENT
  Age: 46 Year
  Sex: Female

DRUGS (7)
  1. METOPIRONE [Suspect]
     Active Substance: METYRAPONE
     Indication: Pituitary-dependent Cushing^s syndrome
     Dosage: 250MG; ONE CAPSULE TWICE DAILY
     Dates: start: 20240706
  2. DAYQUIL/NYQU MIS COLD/FLU [Concomitant]
     Indication: Product used for unknown indication
  3. Doxazosin  Tablets 2 mg [Concomitant]
     Indication: Product used for unknown indication
  4. Duloxetine capsule 60mg [Concomitant]
     Indication: Product used for unknown indication
  5. Linzess Cap 145 mg [Concomitant]
     Indication: Product used for unknown indication
  6. OZEMPIC INJ 2MG/3ML [Concomitant]
     Indication: Product used for unknown indication
  7. Pantoprazole tablet 40MG [Concomitant]
     Indication: Product used for unknown indication

REACTIONS (1)
  - Off label use [Unknown]
